FAERS Safety Report 24904869 (Version 1)
Quarter: 2025Q1

REPORT INFORMATION
  Report Type: Spontaneous
  Country: SA (occurrence: SA)
  Receive Date: 20250130
  Receipt Date: 20250130
  Transmission Date: 20250409
  Serious: Yes (Hospitalization)
  Sender: BOEHRINGER INGELHEIM
  Company Number: SA-BoehringerIngelheim-2025-BI-005646

PATIENT
  Age: 64 Year
  Sex: Male

DRUGS (8)
  1. JARDIANCE [Suspect]
     Active Substance: EMPAGLIFLOZIN
     Indication: Product used for unknown indication
  2. Molatoc [Concomitant]
     Indication: Product used for unknown indication
  3. MOVICOL [Concomitant]
     Active Substance: POLYETHYLENE GLYCOL 3350\POTASSIUM CHLORIDE\SODIUM BICARBONATE\SODIUM CHLORIDE
     Indication: Product used for unknown indication
  4. OLANZAPINE [Concomitant]
     Active Substance: OLANZAPINE
     Indication: Product used for unknown indication
  5. VITAMIN C [Concomitant]
     Active Substance: ASCORBIC ACID
     Indication: Product used for unknown indication
  6. Merzagen [Concomitant]
     Indication: Product used for unknown indication
  7. RIAPANTA [Concomitant]
     Indication: Product used for unknown indication
  8. Exelon Patches [Concomitant]

REACTIONS (1)
  - Hypernatraemia [Recovered/Resolved]
